FAERS Safety Report 18840291 (Version 1)
Quarter: 2021Q1

REPORT INFORMATION
  Report Type: Spontaneous
  Country: US (occurrence: US)
  Receive Date: 20210204
  Receipt Date: 20210204
  Transmission Date: 20210419
  Serious: Yes (Hospitalization, Other)
  Sender: FDA-Public Use
  Company Number: US-GLAND PHARMA LIMITED-2021US000734

PATIENT
  Age: 47 Year
  Sex: Female

DRUGS (2)
  1. CISPLATIN. [Suspect]
     Active Substance: CISPLATIN
     Indication: SMALL CELL CARCINOMA OF THE CERVIX
     Dosage: UNK UNK, CYCLIC, 3 CYCLES
     Route: 065
  2. ETOPOSIDE. [Concomitant]
     Active Substance: ETOPOSIDE
     Indication: SMALL CELL CARCINOMA OF THE CERVIX
     Dosage: UNK UNK, CYCLIC, 3 CYCLES

REACTIONS (1)
  - Renal salt-wasting syndrome [Recovered/Resolved]
